FAERS Safety Report 11441887 (Version 1)
Quarter: 2015Q3

REPORT INFORMATION
  Report Type: Spontaneous
  Country: US (occurrence: US)
  Receive Date: 20150901
  Receipt Date: 20150901
  Transmission Date: 20151125
  Serious: No
  Sender: FDA-Public Use
  Company Number: US-009507513-1508USA000998

PATIENT
  Age: 22 Year
  Sex: Female

DRUGS (1)
  1. IMPLANON [Suspect]
     Active Substance: ETONOGESTREL
     Indication: CONTRACEPTION
     Dosage: 1 ROD/ 4 YEARS
     Route: 059
     Dates: start: 20110801

REACTIONS (4)
  - Acne [Unknown]
  - Mood swings [Unknown]
  - Incorrect drug administration duration [Unknown]
  - Depression [Unknown]

NARRATIVE: CASE EVENT DATE: 20110801
